FAERS Safety Report 12461283 (Version 5)
Quarter: 2016Q3

REPORT INFORMATION
  Report Type: Spontaneous
  Country: JP (occurrence: JP)
  Receive Date: 20160613
  Receipt Date: 20160727
  Transmission Date: 20161109
  Serious: Yes (Life-Threatening, Hospitalization, Other)
  Sender: FDA-Public Use
  Company Number: JP-009507513-1606JPN003478

PATIENT
  Age: 68 Year
  Sex: Male
  Weight: 72.9 kg

DRUGS (9)
  1. TEMODAL [Suspect]
     Active Substance: TEMOZOLOMIDE
     Indication: CENTRAL NERVOUS SYSTEM LYMPHOMA
     Dosage: 100MG 10 TABLETS
     Route: 048
     Dates: start: 20160529, end: 20160529
  2. TEMODAL [Suspect]
     Active Substance: TEMOZOLOMIDE
     Indication: CHEMOTHERAPY
  3. RINDERON V [Concomitant]
     Active Substance: BETAMETHASONE VALERATE
     Indication: CEREBRAL OEDEMA MANAGEMENT
     Dosage: 1 MG, TID
     Route: 048
  4. KYTRIL [Concomitant]
     Active Substance: GRANISETRON HYDROCHLORIDE
     Indication: PROPHYLAXIS OF NAUSEA AND VOMITING
     Dosage: 1 MG, QD
     Route: 048
     Dates: start: 20160528
  5. TEMODAL [Suspect]
     Active Substance: TEMOZOLOMIDE
     Indication: CENTRAL NERVOUS SYSTEM LYMPHOMA
     Dosage: 260 MG, ONCE
     Route: 048
     Dates: start: 20160528, end: 20160528
  6. FAMOTIDINE. [Concomitant]
     Active Substance: FAMOTIDINE
     Indication: GASTRITIS PROPHYLAXIS
     Dosage: 10 MG, BID
     Route: 048
  7. TEMODAL [Suspect]
     Active Substance: TEMOZOLOMIDE
     Indication: CENTRAL NERVOUS SYSTEM LYMPHOMA
     Dosage: 20MG 5 TABLETS
     Route: 048
     Dates: start: 20160529, end: 20160529
  8. TEMODAL [Suspect]
     Active Substance: TEMOZOLOMIDE
     Indication: CHEMOTHERAPY
     Dosage: 260 MG, ONCE
     Route: 048
     Dates: start: 20160528, end: 20160528
  9. TEMODAL [Suspect]
     Active Substance: TEMOZOLOMIDE
     Indication: CHEMOTHERAPY

REACTIONS (5)
  - Vomiting [Not Recovered/Not Resolved]
  - Product use issue [Unknown]
  - Seizure [Recovering/Resolving]
  - Dizziness [Not Recovered/Not Resolved]
  - Overdose [Unknown]

NARRATIVE: CASE EVENT DATE: 20160528
